FAERS Safety Report 6316385-5 (Version None)
Quarter: 2009Q3

REPORT INFORMATION
  Report Type: 
  Country: None (occurrence: None)
  Receive Date: 20090820
  Receipt Date: 20090813
  Transmission Date: 20100115
  Serious: Yes (Hospitalization)
  Sender: FDA-Public Use
  Company Number: B0579942A

PATIENT
  Sex: Female
  Weight: 108 kg

DRUGS (11)
  1. MELPHALAN HYDROCHLORIDE [Suspect]
     Indication: MULTIPLE MYELOMA
     Dosage: .25MGK PER DAY
     Route: 065
     Dates: start: 20090525, end: 20090528
  2. THALIDOMIDE [Suspect]
     Indication: MULTIPLE MYELOMA
     Dosage: 200MG PER DAY
     Route: 048
     Dates: start: 20090525
  3. PREDNISONE [Suspect]
     Indication: MULTIPLE MYELOMA
     Dosage: 2MGK PER DAY
     Route: 065
     Dates: start: 20090525, end: 20090528
  4. ATENOLOL [Concomitant]
     Indication: ATRIAL FIBRILLATION
     Dosage: 25MG PER DAY
     Route: 048
     Dates: start: 20090425, end: 20090609
  5. ONDANSETRON [Concomitant]
     Indication: VOMITING
     Dosage: 8MG TWICE PER DAY
     Route: 048
     Dates: end: 20090610
  6. PHENTANYL [Concomitant]
     Indication: PAIN
     Dosage: 25MG EVERY 3 DAYS
     Route: 058
     Dates: start: 20090408
  7. CALCIUM [Concomitant]
     Dosage: 500MG PER DAY
     Route: 048
  8. VITAMIN D3 [Concomitant]
     Dosage: 31UNIT PER DAY
     Route: 048
  9. ENOXAPARIN SODIUM [Concomitant]
     Indication: PROPHYLAXIS
     Dosage: 80MG PER DAY
     Route: 058
     Dates: start: 20090512, end: 20090609
  10. CIPROFLOXACIN [Concomitant]
     Indication: PROPHYLAXIS
     Dosage: 500MG TWICE PER DAY
     Route: 048
     Dates: start: 20090608, end: 20090609
  11. NEUPOGEN [Concomitant]
     Indication: LEUKOPENIA
     Dosage: 480MG PER DAY
     Route: 042
     Dates: start: 20090608, end: 20090611

REACTIONS (4)
  - ANAEMIA [None]
  - GANGRENE [None]
  - LEUKOPENIA [None]
  - NEUTROPENIA [None]
